FAERS Safety Report 21857523 (Version 1)
Quarter: 2023Q1

REPORT INFORMATION
  Report Type: Spontaneous
  Country: US (occurrence: US)
  Receive Date: 20230113
  Receipt Date: 20230113
  Transmission Date: 20230417
  Serious: No
  Sender: FDA-Public Use
  Company Number: US-NAPO PHARMACEUTICALS-2022US003942

PATIENT
  Sex: Male

DRUGS (5)
  1. MYTESI [Suspect]
     Active Substance: CROFELEMER
     Indication: Diarrhoea
     Dosage: 125 MG, DAILY
     Route: 048
     Dates: start: 20220729
  2. MYTESI [Suspect]
     Active Substance: CROFELEMER
     Dosage: 125 MG, BID
     Route: 048
     Dates: start: 20220816
  3. ENTECAVIR [Concomitant]
     Active Substance: ENTECAVIR
     Indication: Hepatitis B
     Dosage: UNK
     Route: 065
  4. PREDNISONE [Concomitant]
     Active Substance: PREDNISONE
     Indication: Diarrhoea
     Dosage: 40 MG
     Route: 065
  5. HYDROCODONE [Concomitant]
     Active Substance: HYDROCODONE
     Indication: Diarrhoea
     Dosage: 0.5 TABLET, BID
     Route: 065

REACTIONS (8)
  - Anal incontinence [Recovered/Resolved]
  - Constipation [Unknown]
  - Flatulence [Recovering/Resolving]
  - Abdominal pain [Unknown]
  - Drug ineffective for unapproved indication [Not Recovered/Not Resolved]
  - Product communication issue [Unknown]
  - Inappropriate schedule of product administration [Unknown]
  - Off label use [Unknown]
